FAERS Safety Report 7736556-0 (Version None)
Quarter: 2011Q3

REPORT INFORMATION
  Report Type: 
  Country: None (occurrence: None)
  Receive Date: 20110908
  Receipt Date: 20110823
  Transmission Date: 20111222
  Serious: Yes (Hospitalization)
  Sender: FDA-Public Use
  Company Number: US-BAYER-201034312NA

PATIENT
  Age: 37 Year
  Sex: Female
  Weight: 77.098 kg

DRUGS (6)
  1. YASMIN [Suspect]
     Indication: PREMENSTRUAL SYNDROME
     Dosage: UNK
     Dates: start: 20050801, end: 20060201
  2. COUMADIN [Concomitant]
  3. PANMIST [Concomitant]
     Route: 055
  4. YASMIN [Suspect]
     Indication: CONTRACEPTION
     Dosage: UNK
     Route: 048
     Dates: start: 20070401, end: 20070901
  5. AVELOX [Concomitant]
     Dosage: UNK
     Dates: start: 20070903
  6. YASMIN [Suspect]
     Indication: MENSTRUAL CYCLE MANAGEMENT
     Dosage: UNK
     Dates: start: 20020401, end: 20030701

REACTIONS (2)
  - PULMONARY EMBOLISM [None]
  - CHEST PAIN [None]
